FAERS Safety Report 17532080 (Version 1)
Quarter: 2020Q1

REPORT INFORMATION
  Report Type: Spontaneous
  Country: CN (occurrence: CN)
  Receive Date: 20200311
  Receipt Date: 20200311
  Transmission Date: 20200409
  Serious: Yes (Other)
  Sender: FDA-Public Use
  Company Number: CN-ABBVIE-20K-035-3308208-00

PATIENT
  Age: 55 Year
  Weight: 70 kg

DRUGS (10)
  1. ALUVIA 200/50 [Suspect]
     Active Substance: LOPINAVIR\RITONAVIR
     Indication: CORONA VIRUS INFECTION
  2. ORAL REHYDRATION SALTS [Concomitant]
     Indication: CORONA VIRUS INFECTION
  3. OSELTAMIVIR PHOSPHATE. [Concomitant]
     Active Substance: OSELTAMIVIR PHOSPHATE
     Indication: CORONA VIRUS INFECTION
  4. ARBIDOL [Suspect]
     Active Substance: UMIFENOVIR
     Indication: CORONA VIRUS INFECTION
     Route: 048
     Dates: start: 20200127, end: 20200207
  5. ORAL REHYDRATION SALTS [Concomitant]
     Indication: PNEUMONIA VIRAL
     Dosage: ONE PACKAGE
     Route: 048
     Dates: start: 20200126, end: 20200127
  6. QING RE QU SHI KE LI [Concomitant]
     Indication: PNEUMONIA VIRAL
     Dosage: ONE PACKAGE
     Route: 048
     Dates: start: 20200126, end: 20200204
  7. ARBIDOL [Suspect]
     Active Substance: UMIFENOVIR
     Indication: PNEUMONIA VIRAL
  8. QING RE QU SHI KE LI [Concomitant]
     Indication: CORONA VIRUS INFECTION
  9. OSELTAMIVIR PHOSPHATE. [Concomitant]
     Active Substance: OSELTAMIVIR PHOSPHATE
     Indication: PNEUMONIA VIRAL
     Dosage: ONE PACKAGE
     Route: 048
     Dates: start: 20200126, end: 20200201
  10. ALUVIA 200/50 [Suspect]
     Active Substance: LOPINAVIR\RITONAVIR
     Indication: PNEUMONIA VIRAL
     Route: 048
     Dates: start: 20200127, end: 20200216

REACTIONS (4)
  - Therapeutic response unexpected [Unknown]
  - Platelet count decreased [Recovered/Resolved]
  - Neutrophil count decreased [Recovered/Resolved]
  - Off label use [Unknown]

NARRATIVE: CASE EVENT DATE: 20200127
